FAERS Safety Report 15999937 (Version 1)
Quarter: 2019Q1

REPORT INFORMATION
  Report Type: Spontaneous
  Country: GB (occurrence: GB)
  Receive Date: 20190223
  Receipt Date: 20190223
  Transmission Date: 20190418
  Serious: Yes (Other)
  Sender: FDA-Public Use
  Company Number: None

PATIENT
  Age: 14 Year
  Sex: Female
  Weight: 62 kg

DRUGS (1)
  1. MONTELUCAST [Suspect]
     Active Substance: MONTELUKAST SODIUM
     Indication: ASTHMA
     Dosage: ?          QUANTITY:28 TABLET(S);?
     Route: 048
     Dates: start: 20180523, end: 20190116

REACTIONS (7)
  - Tearfulness [None]
  - Palpitations [None]
  - Nervousness [None]
  - Anxiety [None]
  - Insomnia [None]
  - Panic attack [None]
  - Menorrhagia [None]

NARRATIVE: CASE EVENT DATE: 20190115
